FAERS Safety Report 5471681-9 (Version None)
Quarter: 2007Q3

REPORT INFORMATION
  Report Type: 
  Country: None (occurrence: None)
  Receive Date: 20070928
  Receipt Date: 20070329
  Transmission Date: 20080115
  Serious: No
  Sender: FDA-Public Use
  Company Number: US-BRISTOL-MYERS SQUIBB COMPANY-13731492

PATIENT
  Age: 43 Year
  Sex: Male

DRUGS (2)
  1. DEFINITY [Suspect]
  2. LISINOPRIL [Concomitant]

REACTIONS (2)
  - NAUSEA [None]
  - VOMITING [None]
